FAERS Safety Report 7166421-1 (Version None)
Quarter: 2010Q4

REPORT INFORMATION
  Report Type: 
  Country: None (occurrence: None)
  Receive Date: 20101216
  Receipt Date: 20101201
  Transmission Date: 20110411
  Serious: Yes (Other)
  Sender: FDA-Public Use
  Company Number: PHFR2010IE05464

PATIENT
  Sex: Male

DRUGS (1)
  1. CLOZARIL [Suspect]
     Indication: SCHIZOPHRENIA
     Dosage: 50 MG DAILY
     Route: 048
     Dates: start: 20101108

REACTIONS (4)
  - DIGEORGE'S SYNDROME [None]
  - EOSINOPHIL COUNT INCREASED [None]
  - TACHYCARDIA [None]
  - URINARY TRACT INFECTION [None]
